FAERS Safety Report 13297741 (Version 1)
Quarter: 2017Q1

REPORT INFORMATION
  Report Type: Spontaneous
  Country: US (occurrence: US)
  Receive Date: 20170305
  Receipt Date: 20170305
  Transmission Date: 20170428
  Serious: Yes (Life-Threatening, Disabling)
  Sender: FDA-Public Use
  Company Number: None

PATIENT
  Age: 35 Year
  Sex: Female
  Weight: 51.71 kg

DRUGS (11)
  1. MIRENA [Suspect]
     Active Substance: LEVONORGESTREL
     Dates: start: 20160707, end: 20160909
  2. HERCEPTIN [Concomitant]
     Active Substance: TRASTUZUMAB
  3. ZOFRAN [Concomitant]
     Active Substance: ONDANSETRON HYDROCHLORIDE
  4. PERJETA [Concomitant]
     Active Substance: PERTUZUMAB
  5. LOMOTIL [Concomitant]
     Active Substance: ATROPINE SULFATE\DIPHENOXYLATE HYDROCHLORIDE
  6. DEXAMETHASON [Concomitant]
     Active Substance: DEXAMETHASONE
  7. CARBOPLATIN. [Concomitant]
     Active Substance: CARBOPLATIN
  8. NEURONTIN [Concomitant]
     Active Substance: GABAPENTIN
  9. ZOLOFT [Concomitant]
     Active Substance: SERTRALINE HYDROCHLORIDE
  10. XANAX [Concomitant]
     Active Substance: ALPRAZOLAM
  11. TAXOTERE [Concomitant]
     Active Substance: DOCETAXEL

REACTIONS (3)
  - Depression [None]
  - Alopecia [None]
  - HER-2 positive breast cancer [None]

NARRATIVE: CASE EVENT DATE: 20160820
